FAERS Safety Report 21640324 (Version 1)
Quarter: 2022Q4

REPORT INFORMATION
  Report Type: Spontaneous
  Country: AU (occurrence: AU)
  Receive Date: 20221124
  Receipt Date: 20221124
  Transmission Date: 20230113
  Serious: Yes (Other)
  Sender: FDA-Public Use
  Company Number: AU-002147023-NVSC2022AU263518

PATIENT
  Age: 17 Year
  Sex: Female

DRUGS (2)
  1. RISPERIDONE [Suspect]
     Active Substance: RISPERIDONE
     Indication: CHARGE syndrome
     Dosage: 300 MG, NOCTE
     Route: 065
  2. CLONIDINE [Concomitant]
     Active Substance: CLONIDINE
     Indication: CHARGE syndrome
     Dosage: 300 MG, NOCTE
     Route: 065

REACTIONS (3)
  - Hyperprolactinaemia [Unknown]
  - Galactorrhoea [Unknown]
  - Product use in unapproved indication [Unknown]
